FAERS Safety Report 24293302 (Version 1)
Quarter: 2024Q3

REPORT INFORMATION
  Report Type: Spontaneous
  Country: US (occurrence: None)
  Receive Date: 20240906
  Receipt Date: 20240906
  Transmission Date: 20241016
  Serious: No
  Sender: DOMPE FARMACEUTICI
  Company Number: US-FARMAPROD-202312-3799

PATIENT
  Sex: Female

DRUGS (1)
  1. OXERVATE [Suspect]
     Active Substance: CENEGERMIN-BKBJ
     Indication: Neurotrophic keratopathy
     Route: 047
     Dates: start: 20231204

REACTIONS (8)
  - Nasopharyngitis [Unknown]
  - Nasal congestion [Unknown]
  - Sinusitis [Unknown]
  - Foreign body sensation in eyes [Unknown]
  - Asthenia [Unknown]
  - Dry eye [Unknown]
  - Eye pain [Unknown]
  - Ocular hyperaemia [Unknown]
